FAERS Safety Report 6611485-4 (Version None)
Quarter: 2010Q1

REPORT INFORMATION
  Report Type: 
  Country: None (occurrence: None)
  Receive Date: 20100218
  Receipt Date: 20091102
  Transmission Date: 20100710
  Serious: No
  Sender: FDA-Public Use
  Company Number: WAES 0911USA00573

PATIENT

DRUGS (3)
  1. ISENTRESS [Suspect]
     Indication: HIV INFECTION
     Dosage: 400 MG/BID/PO
     Route: 048
  2. ATRIPLA [Concomitant]
  3. PREZISTA [Concomitant]

REACTIONS (1)
  - LACTIC ACIDOSIS [None]
